FAERS Safety Report 6673260-4 (Version None)
Quarter: 2010Q2

REPORT INFORMATION
  Report Type: 
  Country: None (occurrence: None)
  Receive Date: 20100408
  Receipt Date: 20100329
  Transmission Date: 20101027
  Serious: Yes (Hospitalization)
  Sender: FDA-Public Use
  Company Number: US-WATSON-2010-04125

PATIENT

DRUGS (2)
  1. COLCHICINE (WATSON LABORATORIES) [Suspect]
     Indication: GOUT
     Dosage: UNK
     Route: 048
  2. ULORIC [Suspect]
     Indication: GOUT
     Dosage: 1 TABLET, DAILY
     Route: 048

REACTIONS (4)
  - BLOOD URIC ACID INCREASED [None]
  - CONDITION AGGRAVATED [None]
  - DRUG INEFFECTIVE [None]
  - GOUT [None]
